FAERS Safety Report 10449153 (Version 1)
Quarter: 2014Q3

REPORT INFORMATION
  Report Type: Report from Study
  Country: CA (occurrence: CA)
  Receive Date: 20140912
  Receipt Date: 20140912
  Transmission Date: 20150326
  Serious: Yes (Other)
  Sender: FDA-Public Use
  Company Number: CA-BRISTOL-MYERS SQUIBB COMPANY-21384607

PATIENT
  Age: 72 Year
  Sex: Female

DRUGS (12)
  1. CALCIUM [Concomitant]
     Active Substance: CALCIUM
  2. VITAMIN D [Concomitant]
     Active Substance: CHOLECALCIFEROL
  3. VITALUX [Concomitant]
  4. LEUCOVORIN [Concomitant]
     Active Substance: LEUCOVORIN
  5. MELOXICAM. [Concomitant]
     Active Substance: MELOXICAM
  6. METHOTREXATE [Concomitant]
     Active Substance: METHOTREXATE
  7. GABAPENTIN. [Concomitant]
     Active Substance: GABAPENTIN
  8. VITAMIN B12 [Concomitant]
     Active Substance: CYANOCOBALAMIN
  9. OXYCONTIN [Concomitant]
     Active Substance: OXYCODONE HYDROCHLORIDE
  10. ANTIBIOTICS [Concomitant]
     Active Substance: UNSPECIFIED INGREDIENT
  11. ORENCIA [Suspect]
     Active Substance: ABATACEPT
     Indication: RHEUMATOID ARTHRITIS
     Route: 058
     Dates: start: 201406
  12. NORTRIPTYLINE [Concomitant]
     Active Substance: NORTRIPTYLINE

REACTIONS (2)
  - Bladder prolapse [Unknown]
  - Rectal prolapse [Unknown]
